FAERS Safety Report 7556240-6 (Version None)
Quarter: 2011Q2

REPORT INFORMATION
  Report Type: 
  Country: None (occurrence: None)
  Receive Date: 20110620
  Receipt Date: 20110613
  Transmission Date: 20111010
  Serious: No
  Sender: FDA-Public Use
  Company Number: US-PFIZER INC-2011130180

PATIENT
  Sex: Female
  Weight: 62.585 kg

DRUGS (2)
  1. LEVONORGESTREL [Suspect]
     Indication: CONTRACEPTION
     Dosage: 1.5 MG, 1X/DAY
     Route: 048
     Dates: start: 20110528, end: 20110528
  2. LYBREL [Suspect]
     Indication: CONTRACEPTION
     Dosage: UNK

REACTIONS (3)
  - NAUSEA [None]
  - ABDOMINAL PAIN [None]
  - BREAST TENDERNESS [None]
